FAERS Safety Report 10014463 (Version 1)
Quarter: 2014Q1

REPORT INFORMATION
  Report Type: Spontaneous
  Country: CA (occurrence: CA)
  Receive Date: 20140317
  Receipt Date: 20140317
  Transmission Date: 20141002
  Serious: Yes (Hospitalization, Other)
  Sender: FDA-Public Use
  Company Number: CA-009507513-1403CAN006944

PATIENT
  Age: 63 Year
  Sex: Female

DRUGS (7)
  1. NITRO-DUR [Suspect]
     Route: 065
  2. FAMPYRA [Suspect]
     Dosage: 2 DF, QD
     Route: 048
  3. BACLOFEN [Concomitant]
     Route: 065
  4. CALCIUM (UNSPECIFIED) [Concomitant]
     Route: 065
  5. ELAVIL (ALLOPURINOL) [Concomitant]
     Route: 048
  6. FOLIC ACID [Concomitant]
     Route: 065
  7. VITAMIN D (UNSPECIFIED) [Concomitant]
     Route: 065

REACTIONS (3)
  - Loss of consciousness [Unknown]
  - Arrhythmia [Unknown]
  - Dehydration [Unknown]
